FAERS Safety Report 24617539 (Version 2)
Quarter: 2024Q4

REPORT INFORMATION
  Report Type: Spontaneous
  Country: CN (occurrence: CN)
  Receive Date: 20241114
  Receipt Date: 20241122
  Transmission Date: 20250114
  Serious: Yes (Other)
  Sender: Kenvue
  Company Number: CN-KENVUE-20241100886

PATIENT

DRUGS (2)
  1. ACETAMINOPHEN [Suspect]
     Active Substance: ACETAMINOPHEN
     Indication: Pyrexia
     Dosage: 0.65 GRAM, ONCE A DAY
     Route: 048
     Dates: start: 20241017, end: 20241022
  2. HERBALS [Suspect]
     Active Substance: HERBALS
     Indication: Pyrexia
     Dosage: 3.000 GRAM, ONCE A DAY
     Route: 048
     Dates: start: 20241017, end: 20241022

REACTIONS (5)
  - Abdominal distension [Unknown]
  - Hypoaesthesia [Unknown]
  - Hypoaesthesia oral [Unknown]
  - Inappropriate schedule of product administration [Unknown]
  - Drug eruption [Unknown]

NARRATIVE: CASE EVENT DATE: 20241017
